FAERS Safety Report 4850128-7 (Version None)
Quarter: 2005Q4

REPORT INFORMATION
  Report Type: 
  Country: None (occurrence: None)
  Receive Date: 20051123
  Receipt Date: 20050511
  Transmission Date: 20060501
  Serious: Yes (Other)
  Sender: FDA-Public Use
  Company Number: 2005061896

PATIENT
  Age: 69 Year
  Sex: Male

DRUGS (5)
  1. LIPITOR [Suspect]
     Indication: HYPERLIPIDAEMIA
     Dosage: 10 MG (10 MG 1 IN 1 D) ORAL
     Route: 048
     Dates: start: 20050319, end: 20050322
  2. DIGOXIN [Concomitant]
  3. SOTALOL HCL [Concomitant]
  4. SYNTHROID [Concomitant]
  5. AVANDIA [Concomitant]

REACTIONS (1)
  - STEVENS-JOHNSON SYNDROME [None]
